FAERS Safety Report 12621044 (Version 3)
Quarter: 2018Q3

REPORT INFORMATION
  Report Type: Spontaneous
  Country: US (occurrence: US)
  Receive Date: 20160804
  Receipt Date: 20180704
  Transmission Date: 20181010
  Serious: No
  Sender: FDA-Public Use
  Company Number: US-PFIZER INC-2016337047

PATIENT
  Age: 56 Year
  Sex: Female
  Weight: 86 kg

DRUGS (1)
  1. XELJANZ [Suspect]
     Active Substance: TOFACITINIB CITRATE
     Indication: RHEUMATOID ARTHRITIS
     Dosage: 5 MG, 2X/DAY
     Route: 048
     Dates: start: 2015, end: 20180611

REACTIONS (8)
  - Intentional product misuse [Unknown]
  - Depression [Unknown]
  - Influenza like illness [Unknown]
  - Pain [Not Recovered/Not Resolved]
  - Drug ineffective [Unknown]
  - Malaise [Unknown]
  - Drug dose omission [Unknown]
  - Arthralgia [Unknown]
